FAERS Safety Report 9810186 (Version 1)
Quarter: 2014Q1

REPORT INFORMATION
  Report Type: Spontaneous
  Country: US (occurrence: US)
  Receive Date: 20140110
  Receipt Date: 20140110
  Transmission Date: 20141002
  Serious: Yes (Death, Hospitalization)
  Sender: FDA-Public Use
  Company Number: US-SANOFI-AVENTIS-2013SA076344

PATIENT
  Sex: Male
  Weight: 70.7 kg

DRUGS (9)
  1. PLAVIX [Suspect]
     Indication: PROPHYLAXIS
     Route: 048
     Dates: start: 20100902
  2. ASPIRIN [Suspect]
     Indication: PROPHYLAXIS
     Route: 065
     Dates: start: 20100831
  3. INVESTIGATIONAL DRUG [Suspect]
     Indication: DEMENTIA ALZHEIMER^S TYPE
     Route: 051
     Dates: start: 20110831, end: 20110831
  4. METOPROLOL TARTRATE [Suspect]
     Indication: PROPHYLAXIS
     Route: 065
     Dates: start: 20100902
  5. LOVASTATIN [Concomitant]
     Dates: start: 2008
  6. FLORINEF [Concomitant]
     Dates: start: 2008
  7. VESICARE [Concomitant]
     Dates: start: 20100518
  8. ARICEPT [Concomitant]
     Dates: start: 2006
  9. NAMENDA [Concomitant]
     Dates: start: 2008

REACTIONS (3)
  - Subarachnoid haemorrhage [Fatal]
  - Anxiety [Unknown]
  - Tension headache [Unknown]
